FAERS Safety Report 9055849 (Version 1)
Quarter: 2013Q1

REPORT INFORMATION
  Report Type: Spontaneous
  Country: US (occurrence: US)
  Receive Date: 20130206
  Receipt Date: 20130206
  Transmission Date: 20140127
  Serious: No
  Sender: FDA-Public Use
  Company Number: US-ALLERGAN-1203365US

PATIENT
  Age: 70 Year
  Sex: Male

DRUGS (1)
  1. RESTASIS [Suspect]
     Indication: DRY EYE
     Dosage: UNK
     Route: 047
     Dates: start: 20120308

REACTIONS (2)
  - Burning sensation [Not Recovered/Not Resolved]
  - Scleral hyperaemia [Not Recovered/Not Resolved]
